FAERS Safety Report 4354177-7 (Version None)
Quarter: 2004Q2

REPORT INFORMATION
  Report Type: 
  Country: None (occurrence: None)
  Receive Date: 20040506
  Receipt Date: 20040406
  Transmission Date: 20050107
  Serious: Yes (Other)
  Sender: FDA-Public Use
  Company Number: PHBS2004BR04682

PATIENT
  Age: 56 Year
  Sex: Female
  Weight: 66 kg

DRUGS (3)
  1. DIOVAN HCT [Suspect]
     Indication: HYPERTENSION
     Dosage: 1 TABLET IN MORNING
     Route: 048
  2. OLCADIL [Concomitant]
     Indication: ANXIETY
     Dosage: 1 TABLET AT NIGHT
     Route: 048
  3. FORASEQ [Concomitant]
     Indication: ASTHMA
     Dosage: UNK, TID
     Route: 048

REACTIONS (5)
  - ASTHMA [None]
  - DYSPNOEA [None]
  - HOUSE DUST ALLERGY [None]
  - MALAISE [None]
  - TREMOR [None]
